FAERS Safety Report 19197157 (Version 1)
Quarter: 2021Q2

REPORT INFORMATION
  Report Type: Spontaneous
  Country: US (occurrence: US)
  Receive Date: 20210429
  Receipt Date: 20210429
  Transmission Date: 20210717
  Serious: Yes (Other)
  Sender: FDA-Public Use
  Company Number: US-JNJFOC-20210438602

PATIENT

DRUGS (1)
  1. ELMIRON [Suspect]
     Active Substance: PENTOSAN POLYSULFATE SODIUM
     Indication: PRODUCT USED FOR UNKNOWN INDICATION
     Dosage: 400?600 MG DAILY FOR 17?19 YEARS
     Route: 065

REACTIONS (5)
  - Macular pigmentation [Unknown]
  - Vitamin A decreased [Unknown]
  - Photophobia [Unknown]
  - Dry eye [Unknown]
  - Blood zinc decreased [Unknown]
